FAERS Safety Report 19494698 (Version 1)
Quarter: 2021Q3

REPORT INFORMATION
  Report Type: Spontaneous
  Country: FR (occurrence: FR)
  Receive Date: 20210706
  Receipt Date: 20210706
  Transmission Date: 20211014
  Serious: Yes (Hospitalization)
  Sender: FDA-Public Use
  Company Number: FR-ROCHE-2862032

PATIENT
  Age: 54 Year
  Sex: Female

DRUGS (2)
  1. DAFALGAN CODEINE [Suspect]
     Active Substance: ACETAMINOPHEN\CODEINE PHOSPHATE
     Indication: PRODUCT USED FOR UNKNOWN INDICATION
     Dosage: 2?4 COMPRIMES/JOUR SELON CEPHALEES
     Route: 048
     Dates: start: 2021
  2. VALIUM [Suspect]
     Active Substance: DIAZEPAM
     Indication: PRODUCT USED FOR UNKNOWN INDICATION
     Dosage: 3 COMPRIMES A 10MG/JOUR MAJORE SELON BESOIN
     Route: 048
     Dates: start: 2021

REACTIONS (3)
  - Intentional product misuse [Unknown]
  - Confusional state [Recovering/Resolving]
  - Drug abuser [Unknown]

NARRATIVE: CASE EVENT DATE: 2021
